FAERS Safety Report 5342889-8 (Version None)
Quarter: 2007Q2

REPORT INFORMATION
  Report Type: 
  Country: None (occurrence: None)
  Receive Date: 20070416
  Receipt Date: 20070215
  Transmission Date: 20071010
  Serious: No
  Sender: FDA-Public Use
  Company Number: 2007SP000515

PATIENT
  Age: 62 Year
  Sex: Female
  Weight: 58.9676 kg

DRUGS (7)
  1. LUNESTA [Suspect]
     Indication: INSOMNIA
     Dosage: 3 MG;PRN;ORAL
     Route: 048
     Dates: start: 20070101, end: 20070201
  2. SOMA [Concomitant]
  3. ALBUTEROL [Concomitant]
  4. METHADONE HCL [Concomitant]
  5. AVANDIA [Concomitant]
  6. NASAL SPRAY [Concomitant]
  7. AMBIEN [Concomitant]

REACTIONS (2)
  - DYSGEUSIA [None]
  - VOMITING [None]
